FAERS Safety Report 16235082 (Version 1)
Quarter: 2019Q2

REPORT INFORMATION
  Report Type: Spontaneous
  Country: US (occurrence: US)
  Receive Date: 20190320
  Receipt Date: 20190320
  Transmission Date: 20190711
  Serious: No
  Sender: FDA-Public Use
  Company Number: None

PATIENT
  Age: 13 Year
  Sex: Male

DRUGS (1)
  1. NEULASTA [Suspect]
     Active Substance: PEGFILGRASTIM
     Indication: ANAPLASTIC LARGE-CELL LYMPHOMA
     Route: 058
     Dates: start: 20180211

REACTIONS (1)
  - Testicular pain [None]

NARRATIVE: CASE EVENT DATE: 201902
